FAERS Safety Report 7405921-3 (Version None)
Quarter: 2011Q2

REPORT INFORMATION
  Report Type: 
  Country: None (occurrence: None)
  Receive Date: 20110411
  Receipt Date: 20110401
  Transmission Date: 20111010
  Serious: Yes (Other)
  Sender: FDA-Public Use
  Company Number: US-AMGEN-USASP2011017526

PATIENT
  Age: 66 Year
  Sex: Female

DRUGS (1)
  1. ENBREL [Suspect]
     Indication: PSORIATIC ARTHROPATHY
     Dosage: 50 MG, QWK
     Dates: start: 20070301

REACTIONS (12)
  - MUSCULAR WEAKNESS [None]
  - LOSS OF CONSCIOUSNESS [None]
  - BALANCE DISORDER [None]
  - FALL [None]
  - WALKING AID USER [None]
  - CHRONIC OBSTRUCTIVE PULMONARY DISEASE [None]
  - INFECTIVE EXACERBATION OF CHRONIC OBSTRUCTIVE AIRWAYS DISEASE [None]
  - WEIGHT INCREASED [None]
  - SYNCOPE [None]
  - ASTHMA [None]
  - INJECTION SITE REACTION [None]
  - LOWER LIMB FRACTURE [None]
